FAERS Safety Report 10236408 (Version 1)
Quarter: 2014Q2

REPORT INFORMATION
  Report Type: Spontaneous
  Country: IT (occurrence: IT)
  Receive Date: 20140613
  Receipt Date: 20140613
  Transmission Date: 20141212
  Serious: Yes (Other)
  Sender: FDA-Public Use
  Company Number: IT-WATSON-2014-13298

PATIENT
  Age: 35 Year
  Sex: Female

DRUGS (1)
  1. LEVETIRACETAM (UNKNOWN) [Suspect]
     Indication: GENERALISED TONIC-CLONIC SEIZURE
     Dosage: 1500 MG, DAILY
     Route: 065

REACTIONS (4)
  - Alopecia [Recovered/Resolved]
  - Zinc deficiency [Recovered/Resolved]
  - Blood sodium decreased [Unknown]
  - Blood potassium decreased [Unknown]
